FAERS Safety Report 22893617 (Version 2)
Quarter: 2024Q2

REPORT INFORMATION
  Report Type: Spontaneous
  Country: CA (occurrence: CA)
  Receive Date: 20230901
  Receipt Date: 20240408
  Transmission Date: 20240716
  Serious: Yes (Other)
  Sender: FDA-Public Use
  Company Number: CA-SANDOZ-SDZ2023CA020877

PATIENT
  Age: 29 Year
  Sex: Male

DRUGS (4)
  1. RISPERIDONE [Suspect]
     Active Substance: RISPERIDONE
     Indication: Hallucination, auditory
     Dosage: 4 MG, QD
     Route: 048
  2. RISPERIDONE [Suspect]
     Active Substance: RISPERIDONE
     Indication: Hallucination, auditory
     Route: 048
  3. RISPERIDONE [Suspect]
     Active Substance: RISPERIDONE
     Indication: Delusion of grandeur
  4. RISPERIDONE [Suspect]
     Active Substance: RISPERIDONE
     Indication: Delusion of grandeur

REACTIONS (2)
  - Psychotic disorder [Recovered/Resolved]
  - Weight increased [Recovered/Resolved]
